FAERS Safety Report 8518176-3 (Version None)
Quarter: 2012Q3

REPORT INFORMATION
  Report Type: 
  Country: None (occurrence: None)
  Receive Date: 20120718
  Receipt Date: 20111018
  Transmission Date: 20120928
  Serious: No
  Sender: FDA-Public Use
  Company Number: US-BRISTOL-MYERS SQUIBB COMPANY-16172744

PATIENT
  Age: 82 Year
  Sex: Female
  Weight: 59 kg

DRUGS (3)
  1. COUMADIN [Suspect]
     Dosage: ONCE DAILY EVERY OTHER DAY OF THE WEEK(4 MG ONCE DAILY TUESDAY TO SUNDAY)
  2. WARFARIN SODIUM [Suspect]
     Dosage: EVERY MONDAY
  3. AMIODARONE HCL [Concomitant]
     Indication: ATRIAL FIBRILLATION

REACTIONS (1)
  - PROTHROMBIN TIME RATIO ABNORMAL [None]
